FAERS Safety Report 18035810 (Version 6)
Quarter: 2021Q3

REPORT INFORMATION
  Report Type: Report from Study
  Country: DE (occurrence: DE)
  Receive Date: 20200717
  Receipt Date: 20210910
  Transmission Date: 20211014
  Serious: Yes (Death, Hospitalization, Other)
  Sender: FDA-Public Use
  Company Number: DE-AMGEN-DEUNI2020114384

PATIENT
  Age: 64 Year
  Sex: Female

DRUGS (15)
  1. ERENUMAB [Suspect]
     Active Substance: ERENUMAB
     Dosage: 140 MILLIGRAM
     Route: 065
     Dates: start: 20200311, end: 20200311
  2. DOXEPIN [Concomitant]
     Active Substance: DOXEPIN
     Indication: SLEEP DISORDER
     Dosage: 25 MILLIGRAM, QD
     Route: 048
     Dates: start: 20190117
  3. ERENUMAB [Suspect]
     Active Substance: ERENUMAB
     Dosage: 140 MILLIGRAM
     Route: 065
     Dates: start: 20190925, end: 20190925
  4. ERENUMAB [Suspect]
     Active Substance: ERENUMAB
     Dosage: 140 MILLIGRAM
     Route: 065
     Dates: start: 20200117, end: 20200117
  5. ERENUMAB [Suspect]
     Active Substance: ERENUMAB
     Dosage: 140 MILLIGRAM
     Route: 065
     Dates: start: 20200214, end: 20200214
  6. ERENUMAB [Suspect]
     Active Substance: ERENUMAB
     Dosage: 140 MILLIGRAM
     Route: 065
     Dates: start: 20200610, end: 20200610
  7. ZOLMITRIPTAN. [Concomitant]
     Active Substance: ZOLMITRIPTAN
     Indication: MIGRAINE
     Dosage: 5 MILLIGRAM,  PRN
     Route: 048
     Dates: start: 20190802
  8. ERENUMAB [Suspect]
     Active Substance: ERENUMAB
     Dosage: 140 MILLIGRAM
     Route: 065
     Dates: start: 20191118, end: 20191118
  9. ERENUMAB [Suspect]
     Active Substance: ERENUMAB
     Dosage: 70 MILLIGRAM
     Route: 065
     Dates: start: 20190826, end: 20190826
  10. ERENUMAB [Suspect]
     Active Substance: ERENUMAB
     Indication: MIGRAINE
     Dosage: UNK (70/140 MG)
     Route: 058
     Dates: start: 20190729, end: 20190729
  11. ERENUMAB [Suspect]
     Active Substance: ERENUMAB
     Dosage: 140 MILLIGRAM
     Route: 065
     Dates: start: 20191021, end: 20191021
  12. ERENUMAB [Suspect]
     Active Substance: ERENUMAB
     Dosage: 140 MILLIGRAM
     Route: 065
     Dates: start: 20200409, end: 20200409
  13. NAPROXEN. [Concomitant]
     Active Substance: NAPROXEN
     Indication: PAIN
     Dosage: 500 MILLIGRAM, PRN
     Route: 048
     Dates: start: 20161207
  14. ERENUMAB [Suspect]
     Active Substance: ERENUMAB
     Dosage: 140 MILLIGRAM
     Route: 065
     Dates: start: 20200514, end: 20200514
  15. ERENUMAB [Suspect]
     Active Substance: ERENUMAB
     Dosage: 140 MILLIGRAM
     Route: 065
     Dates: start: 20191218, end: 20191218

REACTIONS (25)
  - Therapy non-responder [Unknown]
  - Thrombosis [Unknown]
  - Pneumomediastinum [Unknown]
  - Coma [Fatal]
  - Infarction [Fatal]
  - Mydriasis [Fatal]
  - Post procedural haemorrhage [Fatal]
  - Goitre [Unknown]
  - Cerebrosclerosis [Unknown]
  - Swelling [Fatal]
  - Hemiplegia [Fatal]
  - Peripheral venous disease [Unknown]
  - Sulcus vocalis [Fatal]
  - Diverticulitis [Unknown]
  - Haematoma [Fatal]
  - Aortic aneurysm [Fatal]
  - Cardiac tamponade [Fatal]
  - Mesenteric vascular occlusion [Unknown]
  - Aortic stenosis [Fatal]
  - Diverticulum intestinal [Unknown]
  - Haemothorax [Unknown]
  - Atrial fibrillation [Unknown]
  - Renal cyst [Unknown]
  - Brain death [Fatal]
  - Osteochondrosis [Unknown]

NARRATIVE: CASE EVENT DATE: 2020
